FAERS Safety Report 8428738-X (Version None)
Quarter: 2012Q2

REPORT INFORMATION
  Report Type: 
  Country: None (occurrence: None)
  Receive Date: 20120606
  Receipt Date: 20120525
  Transmission Date: 20120825
  Serious: Yes (Other)
  Sender: FDA-Public Use
  Company Number: 2012MA004819

PATIENT
  Age: 38 Year
  Sex: Male

DRUGS (20)
  1. AMOXICILLIN AND CLAVULANATE POTASSIUM [Concomitant]
  2. ERYTHROMYCIN [Concomitant]
  3. FLUOXETINE HYDROCHLORIDE [Suspect]
     Indication: ANXIETY
     Dosage: 20 MG
     Dates: start: 20080808, end: 20120104
  4. CEPHALEXIN [Concomitant]
  5. DICLOFENAC SODIUM [Concomitant]
  6. BENZYDAMINE [Concomitant]
  7. FLUOXETINE [Concomitant]
  8. ZOPICLONE [Concomitant]
  9. CIMETIDINE [Concomitant]
  10. PENICILLIN [Concomitant]
  11. PHENOXYMETHYLPENICILLIN [Concomitant]
  12. FLUPENTIXOL [Concomitant]
  13. PROPRANOLOL [Concomitant]
  14. CETIRIZINE [Concomitant]
  15. LORAZEPAM [Concomitant]
  16. ZOPICLONE [Concomitant]
  17. CETIRIZINE [Concomitant]
  18. PENICILLIN [Concomitant]
  19. ZIMOVANE [Concomitant]
  20. FLUCLOXACILLIN [Concomitant]

REACTIONS (3)
  - SUICIDAL IDEATION [None]
  - DRUG INEFFECTIVE [None]
  - DEPRESSED MOOD [None]
